FAERS Safety Report 8593603-4 (Version None)
Quarter: 2012Q3

REPORT INFORMATION
  Report Type: 
  Country: None (occurrence: None)
  Receive Date: 20120814
  Receipt Date: 20120807
  Transmission Date: 20120928
  Serious: Yes (Hospitalization, Disabling, Other)
  Sender: FDA-Public Use
  Company Number: US-009507513-1203USA03473

PATIENT

DRUGS (4)
  1. FOSAMAX PLUS D [Suspect]
     Indication: OSTEOPOROSIS
     Route: 048
  2. FOSAMAX [Suspect]
     Dosage: UNK
     Route: 048
     Dates: start: 19960101, end: 20100101
  3. FOSAMAX [Suspect]
     Dosage: 70 MG, QW
     Route: 048
     Dates: start: 20050426
  4. FOSAMAX [Suspect]
     Indication: OSTEOPOROSIS
     Dosage: 70 MG, QW
     Route: 048
     Dates: start: 20080311

REACTIONS (12)
  - HYPOTHYROIDISM [None]
  - ARTHROPATHY [None]
  - FALL [None]
  - NON-HODGKIN'S LYMPHOMA [None]
  - SPINAL OSTEOARTHRITIS [None]
  - FEMORAL NECK FRACTURE [None]
  - ANAEMIA OF MALIGNANT DISEASE [None]
  - ANXIETY [None]
  - LIMB ASYMMETRY [None]
  - ELECTROCARDIOGRAM CHANGE [None]
  - SCIATICA [None]
  - SPONDYLOLISTHESIS [None]
